FAERS Safety Report 6435235-X (Version None)
Quarter: 2009Q4

REPORT INFORMATION
  Report Type: 
  Country: None (occurrence: None)
  Receive Date: 20091110
  Receipt Date: 20090721
  Transmission Date: 20100525
  Serious: No
  Sender: FDA-Public Use
  Company Number: US-ABBOTT-09P-163-0587370-00

PATIENT
  Sex: Female
  Weight: 61.29 kg

DRUGS (1)
  1. TARKA [Suspect]
     Indication: HYPERTENSION
     Dates: start: 20050101, end: 20050101

REACTIONS (1)
  - SWELLING [None]
